FAERS Safety Report 4523595-6 (Version None)
Quarter: 2004Q4

REPORT INFORMATION
  Report Type: 
  Country: None (occurrence: None)
  Receive Date: 20041208
  Receipt Date: 20041201
  Transmission Date: 20050328
  Serious: Yes (Hospitalization)
  Sender: FDA-Public Use
  Company Number: TAP2004Q01551

PATIENT
  Age: 13 Year
  Sex: Female
  Weight: 35.8342 kg

DRUGS (5)
  1. LUPRON DEPOT [Suspect]
     Indication: PRECOCIOUS PUBERTY
     Dosage: 7.5 MG 1 IN 1 M INTRAMUSCULAR; 11.25 MG, INTRAMUSCULAR
     Route: 030
     Dates: start: 20031001, end: 20040901
  2. LUPRON DEPOT [Suspect]
     Indication: PRECOCIOUS PUBERTY
     Dosage: 7.5 MG 1 IN 1 M INTRAMUSCULAR; 11.25 MG, INTRAMUSCULAR
     Route: 030
     Dates: start: 20041028
  3. DEPAKOTE [Concomitant]
  4. RISPERDAL [Concomitant]
  5. LEXAPRO [Concomitant]

REACTIONS (3)
  - BIPOLAR DISORDER [None]
  - CONDITION AGGRAVATED [None]
  - SUICIDAL IDEATION [None]
